FAERS Safety Report 24950220 (Version 1)
Quarter: 2025Q1

REPORT INFORMATION
  Report Type: Spontaneous
  Country: DE (occurrence: DE)
  Receive Date: 20250210
  Receipt Date: 20250210
  Transmission Date: 20250408
  Serious: Yes (Other)
  Sender: AMGEN
  Company Number: DE-AMGEN-DEUSP2025025013

PATIENT

DRUGS (3)
  1. PREDNISONE [Suspect]
     Active Substance: PREDNISONE
     Indication: Pemphigus
     Route: 048
  2. EFGARTIGIMOD ALFA [Suspect]
     Active Substance: EFGARTIGIMOD ALFA
     Indication: Pemphigus
     Route: 040
  3. EFGARTIGIMOD ALFA [Suspect]
     Active Substance: EFGARTIGIMOD ALFA
     Route: 040

REACTIONS (26)
  - Pemphigus [Unknown]
  - Tibia fracture [Unknown]
  - Syncope [Unknown]
  - Pneumonia [Unknown]
  - Nasopharyngitis [Unknown]
  - Urinary tract infection [Unknown]
  - Rhinitis [Unknown]
  - Bronchitis [Unknown]
  - Gastroenteritis [Unknown]
  - Respiratory tract infection [Unknown]
  - Impetigo [Unknown]
  - Diarrhoea [Unknown]
  - Abdominal pain [Unknown]
  - Vomiting [Unknown]
  - Influenza like illness [Unknown]
  - Fatigue [Unknown]
  - Dizziness [Unknown]
  - Anaemia [Unknown]
  - Cough [Unknown]
  - Alanine aminotransferase increased [Unknown]
  - Renal pain [Unknown]
  - Blood albumin increased [Unknown]
  - Dry skin [Unknown]
  - Headache [Unknown]
  - Blood creatine phosphokinase increased [Unknown]
  - Tooth infection [Unknown]
